FAERS Safety Report 8341170-2 (Version None)
Quarter: 2012Q2

REPORT INFORMATION
  Report Type: 
  Country: None (occurrence: None)
  Receive Date: 20120507
  Receipt Date: 20120501
  Transmission Date: 20120825
  Serious: Yes (Hospitalization)
  Sender: FDA-Public Use
  Company Number: US-GILEAD-E2B_00001237

PATIENT
  Sex: Male

DRUGS (4)
  1. AMBRISENTAN [Suspect]
     Indication: PULMONARY ARTERIAL HYPERTENSION
     Dosage: 5 MG, ONCE
     Route: 048
     Dates: start: 20110406
  2. TADALAFIL [Suspect]
     Indication: PULMONARY ARTERIAL HYPERTENSION
     Dosage: 20 MG, ONCE
     Route: 048
     Dates: start: 20110406
  3. LISINOPRIL [Concomitant]
     Indication: HYPERTENSION
     Dosage: 10MG PER DAY
     Route: 048
     Dates: start: 20101101, end: 20110418
  4. FUROSEMIDE [Concomitant]
     Indication: FLUID RETENTION
     Dosage: 80MG PER DAY
     Route: 048
     Dates: start: 20110414, end: 20110418

REACTIONS (2)
  - FLUID RETENTION [None]
  - HYPOTENSION [None]
